FAERS Safety Report 6765186-2 (Version None)
Quarter: 2010Q2

REPORT INFORMATION
  Report Type: 
  Country: None (occurrence: None)
  Receive Date: 20100610
  Receipt Date: 20100610
  Transmission Date: 20101027
  Serious: Yes (Hospitalization)
  Sender: FDA-Public Use
  Company Number: None

PATIENT
  Age: 51 Year
  Sex: Female
  Weight: 98.4306 kg

DRUGS (2)
  1. FUROSEMIDE [Suspect]
     Indication: CARDIAC FAILURE
     Dosage: 80 MG THREE TIMES DAILY PO STARTED SEVERAL YEARS AGO
     Route: 048
  2. KETOROLAC 10 MG NOT AVAILABLE [Suspect]
     Indication: PAIN IN EXTREMITY
     Dosage: 10 MG EVERY 6 HOURS PO
     Route: 048
     Dates: start: 20100511, end: 20100606

REACTIONS (2)
  - ACUTE RESPIRATORY FAILURE [None]
  - RENAL FAILURE ACUTE [None]
